FAERS Safety Report 19965588 (Version 1)
Quarter: 2021Q4

REPORT INFORMATION
  Report Type: Spontaneous
  Country: ES (occurrence: ES)
  Receive Date: 20211018
  Receipt Date: 20211018
  Transmission Date: 20220303
  Serious: Yes (Other)
  Sender: FDA-Public Use
  Company Number: ES-SAKK-2021SA284537AA

PATIENT
  Age: 65 Year
  Sex: Male

DRUGS (13)
  1. ASPIRIN [Interacting]
     Active Substance: ASPIRIN
     Indication: Antiplatelet therapy
     Dosage: 100 MG, QD
     Dates: start: 20210531
  2. ATORVASTATIN [Interacting]
     Active Substance: ATORVASTATIN
     Indication: Low density lipoprotein increased
     Dosage: 40 MG, QD
     Dates: start: 20210531
  3. BISOPROLOL [Interacting]
     Active Substance: BISOPROLOL
     Indication: Product used for unknown indication
     Dosage: 2.5 MG
     Dates: start: 20210531
  4. CLOPIDOGREL BISULFATE [Interacting]
     Active Substance: CLOPIDOGREL BISULFATE
     Indication: Antiplatelet therapy
     Dosage: 75 MG, QD
     Route: 065
     Dates: start: 20210531
  5. METFORMIN HYDROCHLORIDE [Interacting]
     Active Substance: METFORMIN HYDROCHLORIDE
     Indication: Type 2 diabetes mellitus
     Dosage: 850 MG, QD
     Dates: start: 20210531
  6. TELMISARTAN [Interacting]
     Active Substance: TELMISARTAN
     Indication: Hypertension
     Dosage: 40 MG, QD
     Route: 065
     Dates: start: 20210531
  7. DOCONEXENT [Interacting]
     Active Substance: DOCONEXENT
     Indication: Product used for unknown indication
     Dosage: 3 G, QD
     Route: 048
     Dates: start: 20210531
  8. DOCONEXENT [Interacting]
     Active Substance: DOCONEXENT
     Dosage: 1 G QD
  9. EMPAGLIFLOZIN [Interacting]
     Active Substance: EMPAGLIFLOZIN
     Indication: Type 2 diabetes mellitus
     Dosage: 40 MG, QD
     Route: 065
     Dates: start: 20210531
  10. BILBERRY [Interacting]
     Active Substance: BILBERRY
     Indication: Product used for unknown indication
     Dosage: UNK
     Route: 065
  11. GINGER [Interacting]
     Active Substance: GINGER
     Indication: Product used for unknown indication
     Dosage: UNK
     Route: 065
  12. GLYCYRRHIZA GLABRA [Interacting]
     Active Substance: GLYCYRRHIZA GLABRA
     Indication: Smoking cessation therapy
     Dosage: UNK
     Route: 048
  13. PINEAPPLE [Interacting]
     Active Substance: PINEAPPLE
     Indication: Product used for unknown indication
     Dosage: DAILY
     Route: 048

REACTIONS (8)
  - Haemorrhage [Recovered/Resolved]
  - Fatigue [Recovered/Resolved]
  - Coagulopathy [Recovered/Resolved]
  - Increased tendency to bruise [Recovered/Resolved]
  - Gingival bleeding [Recovered/Resolved]
  - Hypertension [Recovered/Resolved]
  - Hypoglycaemia [Unknown]
  - Drug interaction [Recovered/Resolved]
